FAERS Safety Report 13200198 (Version 1)
Quarter: 2017Q1

REPORT INFORMATION
  Report Type: Spontaneous
  Country: CA (occurrence: CA)
  Receive Date: 20170208
  Receipt Date: 20170208
  Transmission Date: 20170428
  Serious: Yes (Hospitalization)
  Sender: FDA-Public Use
  Company Number: CA-ASTRAZENECA-2017SE12841

PATIENT
  Age: 71 Year
  Sex: Female
  Weight: 89.4 kg

DRUGS (9)
  1. HUMALOG [Concomitant]
     Active Substance: INSULIN LISPRO
     Dates: start: 2012
  2. METFORMIN [Concomitant]
     Active Substance: METFORMIN HYDROCHLORIDE
     Dates: start: 1989
  3. LANTUS [Concomitant]
     Active Substance: INSULIN GLARGINE
     Dates: start: 2013
  4. VENLAFAXINE HYDROCHLORIDE. [Suspect]
     Active Substance: VENLAFAXINE HYDROCHLORIDE
     Indication: DEPRESSION
     Route: 065
     Dates: start: 2011
  5. LIPITOR [Concomitant]
     Active Substance: ATORVASTATIN CALCIUM
     Dates: start: 2005
  6. LOSARTAN. [Concomitant]
     Active Substance: LOSARTAN
     Dates: start: 2013
  7. DEXILANT [Concomitant]
     Active Substance: DEXLANSOPRAZOLE
     Dates: start: 2014
  8. QUETIAPINE FUMARATE. [Suspect]
     Active Substance: QUETIAPINE FUMARATE
     Indication: DEPRESSION
     Route: 048
     Dates: start: 2011
  9. BROMAZEPAM [Suspect]
     Active Substance: BROMAZEPAM
     Indication: DEPRESSION
     Route: 065
     Dates: start: 2008

REACTIONS (2)
  - Toxicity to various agents [Recovered/Resolved]
  - Patella fracture [Recovered/Resolved]

NARRATIVE: CASE EVENT DATE: 201603
